FAERS Safety Report 12424873 (Version 1)
Quarter: 2016Q2

REPORT INFORMATION
  Report Type: Report from Study
  Country: MX (occurrence: MX)
  Receive Date: 20160601
  Receipt Date: 20160601
  Transmission Date: 20160815
  Serious: Yes (Other)
  Sender: FDA-Public Use
  Company Number: MX-BAYER-2016-102414

PATIENT
  Sex: Female

DRUGS (1)
  1. BETAFERON [Suspect]
     Active Substance: INTERFERON BETA-1B
     Indication: MULTIPLE SCLEROSIS
     Dosage: UNK
     Dates: start: 20160518

REACTIONS (3)
  - Malaise [Recovering/Resolving]
  - Burning sensation [Recovering/Resolving]
  - Injection site irritation [Recovering/Resolving]

NARRATIVE: CASE EVENT DATE: 20160518
